FAERS Safety Report 19035278 (Version 2)
Quarter: 2021Q2

REPORT INFORMATION
  Report Type: Other
  Country: US (occurrence: US)
  Receive Date: 20210320
  Receipt Date: 20210621
  Transmission Date: 20210717
  Serious: No
  Sender: FDA-Public Use
  Company Number: US-ACORDA-ACO_167802_2021

PATIENT
  Age: 79 Year
  Sex: Male

DRUGS (2)
  1. INBRIJA [Suspect]
     Active Substance: LEVODOPA
     Indication: ON AND OFF PHENOMENON
  2. INBRIJA [Suspect]
     Active Substance: LEVODOPA
     Indication: PARKINSON^S DISEASE
     Dosage: 84 MG, BID  PRN
     Dates: start: 20210125

REACTIONS (3)
  - Ill-defined disorder [Not Recovered/Not Resolved]
  - Cough [Unknown]
  - Productive cough [Unknown]

NARRATIVE: CASE EVENT DATE: 20210302
